FAERS Safety Report 10207173 (Version 1)
Quarter: 2014Q2

REPORT INFORMATION
  Report Type: Spontaneous
  Country: US (occurrence: US)
  Receive Date: 20140530
  Receipt Date: 20140530
  Transmission Date: 20141212
  Serious: No
  Sender: FDA-Public Use
  Company Number: US-GLAXOSMITHKLINE-A1022187A

PATIENT
  Sex: Female

DRUGS (2)
  1. VENTOLIN [Suspect]
     Indication: BRONCHITIS
     Dosage: 2PUFF TWICE PER DAY
     Route: 055
  2. ATENOLOL [Concomitant]

REACTIONS (3)
  - Wheezing [Not Recovered/Not Resolved]
  - Breath sounds abnormal [Unknown]
  - Product quality issue [Unknown]
